FAERS Safety Report 7826966-5 (Version None)
Quarter: 2011Q4

REPORT INFORMATION
  Report Type: 
  Country: None (occurrence: None)
  Receive Date: 20111019
  Receipt Date: 20111019
  Transmission Date: 20120403
  Serious: Yes (Disabling)
  Sender: FDA-Public Use
  Company Number: None

PATIENT
  Sex: Female
  Weight: 58.514 kg

DRUGS (1)
  1. DYSPORT [Suspect]
     Dosage: 1 GLASS VILE  1ST TIME

REACTIONS (3)
  - EYE MOVEMENT DISORDER [None]
  - SKIN DISORDER [None]
  - SKIN WRINKLING [None]
